FAERS Safety Report 12876216 (Version 1)
Quarter: 2016Q4

REPORT INFORMATION
  Report Type: Report from Study
  Country: FR (occurrence: FR)
  Receive Date: 20161024
  Receipt Date: 20161024
  Transmission Date: 20170207
  Serious: Yes (Hospitalization, Other)
  Sender: FDA-Public Use
  Company Number: FR-ROCHE-1361607

PATIENT
  Sex: Female

DRUGS (6)
  1. RITUXIMAB [Suspect]
     Active Substance: RITUXIMAB
     Dosage: 1G (D15)
     Route: 041
     Dates: start: 20070307
  2. ARAVA [Concomitant]
     Active Substance: LEFLUNOMIDE
     Route: 065
  3. RITUXIMAB [Suspect]
     Active Substance: RITUXIMAB
     Indication: RHEUMATOID ARTHRITIS
     Dosage: 1G (D1)
     Route: 041
     Dates: start: 20070221, end: 20070625
  4. RITUXIMAB [Suspect]
     Active Substance: RITUXIMAB
     Route: 041
     Dates: start: 20090223
  5. CORTANCYL [Concomitant]
     Active Substance: PREDNISONE
     Route: 065
  6. LEFLUNOMIDE. [Concomitant]
     Active Substance: LEFLUNOMIDE
     Route: 065

REACTIONS (7)
  - Aspergillus infection [Not Recovered/Not Resolved]
  - Escherichia pyelonephritis [Recovered/Resolved]
  - Pulmonary embolism [Recovered/Resolved]
  - Skin ulcer [Unknown]
  - Infusion related reaction [Recovered/Resolved]
  - Superinfection [Unknown]
  - Intervertebral discitis [Unknown]

NARRATIVE: CASE EVENT DATE: 20070221
